FAERS Safety Report 10052636 (Version 1)
Quarter: 2014Q1

REPORT INFORMATION
  Report Type: Spontaneous
  Country: US (occurrence: None)
  Receive Date: 20140331
  Receipt Date: 20140331
  Transmission Date: 20141002
  Serious: Yes (Hospitalization)
  Sender: FDA-Public Use
  Company Number: UTC-046314

PATIENT
  Age: 26 Year
  Sex: Female
  Weight: 160 kg

DRUGS (2)
  1. REMODULIN [Suspect]
     Indication: PULMONARY ARTERIAL HYPERTENSION
     Dosage: 46.08 MG/KG (0.032 UG/KG. 1 IN 1 MIN)
     Route: 058
  2. COUMADIN (WARFARIN SODIUM0 [Concomitant]

REACTIONS (1)
  - Drug dose omission [None]
